FAERS Safety Report 5614990-2 (Version None)
Quarter: 2008Q1

REPORT INFORMATION
  Report Type: 
  Country: None (occurrence: None)
  Receive Date: 20080206
  Receipt Date: 20080128
  Transmission Date: 20080703
  Serious: Yes (Hospitalization)
  Sender: FDA-Public Use
  Company Number: PHBS2008US01433

PATIENT
  Age: 39 Year
  Sex: Female

DRUGS (4)
  1. OXYTOCIN [Suspect]
     Indication: LABOUR INDUCTION
     Dosage: 6 MU/MIN
     Route: 042
  2. MISOPROSTOL [Concomitant]
     Indication: LABOUR INDUCTION
     Route: 067
  3. ANESTHETICS, LOCAL [Concomitant]
     Route: 008
  4. ANESTHETICS, GENERAL [Concomitant]

REACTIONS (9)
  - ABNORMAL LABOUR [None]
  - BRADYCARDIA FOETAL [None]
  - CAESAREAN SECTION [None]
  - HYSTERECTOMY [None]
  - UTERINE ATONY [None]
  - UTERINE DISORDER [None]
  - UTERINE HAEMORRHAGE [None]
  - UTERINE HYPERTONUS [None]
  - UTERINE HYPOTONUS [None]
